FAERS Safety Report 8232767-9 (Version None)
Quarter: 2012Q1

REPORT INFORMATION
  Report Type: 
  Country: None (occurrence: None)
  Receive Date: 20120323
  Receipt Date: 20120320
  Transmission Date: 20120608
  Serious: Yes (Death, Hospitalization)
  Sender: FDA-Public Use
  Company Number: FR-MERCK-1203FRA00062

PATIENT
  Age: 42 Year
  Sex: Male

DRUGS (16)
  1. VALGANCICLOVIR HYDROCHLORIDE [Concomitant]
     Route: 065
  2. RIFABUTIN [Suspect]
     Route: 048
  3. DARUNAVIR [Concomitant]
     Route: 065
     Dates: end: 20120204
  4. MEGESTROL ACETATE [Concomitant]
     Route: 065
  5. ISENTRESS [Suspect]
     Route: 048
     Dates: start: 20120210
  6. ZIDOVUDINE [Suspect]
     Route: 042
     Dates: start: 20120210, end: 20120214
  7. RITONAVIR [Concomitant]
     Route: 065
     Dates: end: 20120204
  8. METHYLPREDNISOLONE [Concomitant]
     Route: 065
     Dates: end: 20120204
  9. AZITHROMYCIN [Suspect]
     Route: 048
  10. EMTRICITABINE AND TENOFOVIR DISOPROXIL FUMARATE [Concomitant]
     Route: 065
     Dates: end: 20120204
  11. VALGANCICLOVIR HCL [Suspect]
     Route: 042
     Dates: end: 20120215
  12. SULFAMETHOXAZOLE AND TRIMETHOPRIM [Suspect]
     Route: 042
     Dates: end: 20120215
  13. ETRAVIRINE [Suspect]
     Route: 048
     Dates: start: 20120210
  14. ETHAMBUTOL HYDROCHLORIDE [Suspect]
     Route: 042
  15. LAMIVUDINE [Suspect]
     Route: 048
     Dates: start: 20120210
  16. ENFUVIRTIDE [Suspect]
     Route: 058
     Dates: start: 20120210

REACTIONS (3)
  - LEUKOPENIA [None]
  - PANCYTOPENIA [None]
  - NEUTROPENIA [None]
